FAERS Safety Report 7519994-0 (Version None)
Quarter: 2011Q2

REPORT INFORMATION
  Report Type: 
  Country: None (occurrence: None)
  Receive Date: 20110602
  Receipt Date: 20110601
  Transmission Date: 20111010
  Serious: Yes (Hospitalization, Other)
  Sender: FDA-Public Use
  Company Number: US-UCBSA-034356

PATIENT
  Age: 53 Year
  Sex: Male
  Weight: 111 kg

DRUGS (16)
  1. VIAGRA [Concomitant]
  2. DUONEB [Concomitant]
     Indication: DYSPNOEA
     Route: 055
  3. PERCOCET [Suspect]
     Indication: BACK DISORDER
     Route: 048
  4. ASPIRIN [Concomitant]
  5. SYMBICORT [Concomitant]
     Indication: DYSPNOEA
     Dosage: 160/4.5
  6. VENTOLIN [Suspect]
     Indication: CHRONIC OBSTRUCTIVE PULMONARY DISEASE
  7. SYMBICORT [Concomitant]
     Indication: CHRONIC OBSTRUCTIVE PULMONARY DISEASE
     Dosage: 160/4.5
  8. ADVAIR DISKUS 100/50 [Concomitant]
     Indication: CHRONIC OBSTRUCTIVE PULMONARY DISEASE
     Dosage: 500/50
  9. ACCOLATE [Concomitant]
     Indication: DYSPNOEA
  10. METFORMIN HCL [Concomitant]
     Indication: DIABETES MELLITUS
  11. DILTIAZEM [Concomitant]
     Indication: CARDIAC DISORDER
  12. LORTAB [Suspect]
     Indication: BACK DISORDER
     Dosage: 10 MG
     Route: 048
  13. CHANTIX [Suspect]
     Indication: SMOKING CESSATION THERAPY
     Route: 048
     Dates: end: 20110101
  14. ACCOLATE [Concomitant]
     Indication: CHRONIC OBSTRUCTIVE PULMONARY DISEASE
  15. DUONEB [Concomitant]
     Indication: CHRONIC OBSTRUCTIVE PULMONARY DISEASE
     Route: 055
  16. ADVAIR DISKUS 100/50 [Concomitant]
     Indication: DYSPNOEA
     Dosage: 500/50

REACTIONS (4)
  - SPINAL FRACTURE [None]
  - NIGHTMARE [None]
  - TACHYCARDIA [None]
  - LUNG DISORDER [None]
